FAERS Safety Report 25360916 (Version 1)
Quarter: 2025Q2

REPORT INFORMATION
  Report Type: Spontaneous
  Country: NO (occurrence: NO)
  Receive Date: 20250527
  Receipt Date: 20250527
  Transmission Date: 20250717
  Serious: Yes (Death)
  Sender: NOVO NORDISK
  Company Number: NO-NOVOPROD-1434462

PATIENT
  Age: 57 Year
  Sex: Male

DRUGS (1)
  1. WEGOVY [Suspect]
     Active Substance: SEMAGLUTIDE
     Indication: Obesity

REACTIONS (3)
  - Myocardial infarction [Fatal]
  - Food poisoning [Unknown]
  - Biliary colic [Recovered/Resolved]

NARRATIVE: CASE EVENT DATE: 20240201
